FAERS Safety Report 5895347-6 (Version None)
Quarter: 2008Q3

REPORT INFORMATION
  Report Type: 
  Country: None (occurrence: None)
  Receive Date: 20080922
  Receipt Date: 20080922
  Transmission Date: 20090109
  Serious: Yes (Hospitalization, Disabling, Other)
  Sender: FDA-Public Use
  Company Number: None

PATIENT
  Age: 54 Year
  Sex: Female
  Weight: 96.1626 kg

DRUGS (2)
  1. POLYETHYLENE GLYCOL 3350 [Suspect]
     Indication: ILEUS PARALYTIC
     Dosage: 1 CAPFUL TWICE A DAY PO
     Route: 048
     Dates: start: 20080701, end: 20080922
  2. GLYCOLAX [Suspect]

REACTIONS (9)
  - DRUG PRESCRIBING ERROR [None]
  - DYSPNOEA [None]
  - DYSSTASIA [None]
  - HAEMORRHAGE [None]
  - INFLAMMATION [None]
  - OEDEMA PERIPHERAL [None]
  - OVERDOSE [None]
  - PAIN IN EXTREMITY [None]
  - RASH [None]
